FAERS Safety Report 6170739-9 (Version None)
Quarter: 2009Q2

REPORT INFORMATION
  Report Type: 
  Country: None (occurrence: None)
  Receive Date: 20090428
  Receipt Date: 20090422
  Transmission Date: 20091009
  Serious: Yes (Other)
  Sender: FDA-Public Use
  Company Number: FR-GILEAD-2009-0021602

PATIENT
  Sex: Male
  Weight: 14 kg

DRUGS (2)
  1. CIDOFOVIR [Suspect]
     Indication: DRUG USE FOR UNKNOWN INDICATION
     Route: 041
     Dates: start: 20090313, end: 20090321
  2. BENEMIDE [Suspect]
     Route: 048
     Dates: start: 20090313, end: 20090321

REACTIONS (4)
  - BLISTER [None]
  - CHEILITIS [None]
  - EXFOLIATIVE RASH [None]
  - RASH [None]
